FAERS Safety Report 9995629 (Version 1)
Quarter: 2014Q1

REPORT INFORMATION
  Report Type: Spontaneous
  Country: US (occurrence: US)
  Receive Date: 20140311
  Receipt Date: 20140311
  Transmission Date: 20141002
  Serious: No
  Sender: FDA-Public Use
  Company Number: US-GALDERMA-US13000465

PATIENT
  Sex: Female

DRUGS (2)
  1. TRI-LUMA CREAM (FLUOCINOLONE ACETONIDE 0.01%, HYDROQUINOINE 4%, TRETIN [Suspect]
     Indication: CHLOASMA
     Route: 061
  2. LUBRIDERM LOTION [Concomitant]
     Indication: SKIN EXFOLIATION
     Route: 061

REACTIONS (4)
  - Skin exfoliation [Recovered/Resolved]
  - Skin burning sensation [Recovered/Resolved]
  - Pruritus [Recovered/Resolved]
  - Skin irritation [Recovered/Resolved]
